FAERS Safety Report 7094471-2 (Version None)
Quarter: 2010Q4

REPORT INFORMATION
  Report Type: 
  Country: None (occurrence: None)
  Receive Date: 20101110
  Receipt Date: 20101029
  Transmission Date: 20110411
  Serious: Yes (Other)
  Sender: FDA-Public Use
  Company Number: PHHY2010CA69393

PATIENT
  Sex: Female

DRUGS (4)
  1. EXJADE [Suspect]
     Indication: MYELODYSPLASTIC SYNDROME
     Dosage: 1250 MG, QD
     Route: 048
     Dates: start: 20091208
  2. EXJADE [Suspect]
     Indication: IRON OVERLOAD
  3. GABAPENTIN [Concomitant]
  4. VITAMINS [Concomitant]

REACTIONS (3)
  - EYE DISORDER [None]
  - EYE LASER SURGERY [None]
  - OROPHARYNGEAL PAIN [None]
